FAERS Safety Report 5558040-5 (Version None)
Quarter: 2007Q4

REPORT INFORMATION
  Report Type: 
  Country: None (occurrence: None)
  Receive Date: 20071214
  Receipt Date: 20071129
  Transmission Date: 20080405
  Serious: Yes (Life-Threatening)
  Sender: FDA-Public Use
  Company Number: GB-RANBAXY-2007RR-10350

PATIENT

DRUGS (10)
  1. DISPERSIBLE ASPIRIN 75MG TABLETS BP [Suspect]
     Dosage: 75 MG, UNK
     Route: 048
     Dates: end: 20070901
  2. IBUPROFEN TABLETS BP 400MG [Suspect]
     Indication: PAIN
     Dosage: 400 MG, TID
     Route: 048
     Dates: start: 20070825, end: 20070901
  3. CITALOPRAM HYDROBROMIDE [Suspect]
     Indication: DEPRESSION
     Dosage: 10 MG, UNK
     Route: 065
  4. ALFUZOSIN HCL [Concomitant]
     Dosage: 2.5 MG, BID
     Route: 065
  5. COMBIVENT [Concomitant]
     Dosage: 2 DF, QID
     Route: 065
  6. DIGOXIN [Concomitant]
     Dosage: 62.5 UG, UNK
     Route: 048
  7. FUROSEMIDE TABLETS BP 40MG [Concomitant]
     Dosage: 20 MG, UNK
     Route: 048
  8. MOVICOL [Concomitant]
     Dosage: 1 DF, BID
     Route: 065
  9. QVAR 40 [Concomitant]
     Dosage: 200 UG, BID
     Route: 065
  10. RAMIPRIL [Concomitant]
     Dosage: 1.25 MG, UNK
     Route: 048

REACTIONS (1)
  - GASTROINTESTINAL HAEMORRHAGE [None]
